FAERS Safety Report 8612362-X (Version None)
Quarter: 2012Q3

REPORT INFORMATION
  Report Type: 
  Country: None (occurrence: None)
  Receive Date: 20120822
  Receipt Date: 20120814
  Transmission Date: 20120928
  Serious: Yes (Death, Other)
  Sender: FDA-Public Use
  Company Number: US-VERTEX PHARMACEUTICAL INC.-2012-019666

PATIENT
  Age: 57 Year
  Sex: Female

DRUGS (3)
  1. RIBAVIRIN [Concomitant]
     Indication: HEPATITIS C
     Dosage: UNK
  2. PEGASYS [Concomitant]
     Indication: HEPATITIS C
     Dosage: UNK
  3. INCIVEK [Suspect]
     Indication: HEPATITIS C
     Dosage: UNK
     Route: 048

REACTIONS (5)
  - CEREBROVASCULAR ACCIDENT [None]
  - PLATELET COUNT DECREASED [None]
  - HEAD INJURY [None]
  - FALL [None]
  - HAEMORRHAGE INTRACRANIAL [None]
